FAERS Safety Report 19167310 (Version 3)
Quarter: 2021Q4

REPORT INFORMATION
  Report Type: Spontaneous
  Country: US (occurrence: US)
  Receive Date: 20210422
  Receipt Date: 20211027
  Transmission Date: 20220303
  Serious: Yes (Other)
  Sender: FDA-Public Use
  Company Number: US-STRONGBRIDGE BIOPHARMA-2021-STR-000144

PATIENT
  Sex: Female

DRUGS (2)
  1. KEVEYIS [Suspect]
     Active Substance: DICHLORPHENAMIDE
     Indication: Familial periodic paralysis
     Dosage: 50 MG, BID
     Dates: start: 20180526
  2. KEVEYIS [Suspect]
     Active Substance: DICHLORPHENAMIDE
     Dosage: 50 MG, QD

REACTIONS (9)
  - Loss of consciousness [Unknown]
  - Tongue thrust [Unknown]
  - Anxiety [Unknown]
  - Oral pain [Unknown]
  - Discomfort [Unknown]
  - Head discomfort [Unknown]
  - Head injury [Unknown]
  - Fall [Unknown]
  - Dysgeusia [Unknown]
